FAERS Safety Report 10666736 (Version 2)
Quarter: 2014Q4

REPORT INFORMATION
  Report Type: Spontaneous
  Country: None (occurrence: AR)
  Receive Date: 20141222
  Receipt Date: 20141222
  Transmission Date: 20150529
  Serious: Yes (Congenital Anomaly, Other)
  Sender: FDA-Public Use
  Company Number: AR-ACCORD-027598

PATIENT
  Sex: Female
  Weight: 2.18 kg

DRUGS (3)
  1. MYCOPHENOLIC ACID. [Suspect]
     Active Substance: MYCOPHENOLIC ACID
     Indication: SYSTEMIC LUPUS ERYTHEMATOSUS
     Route: 064
  2. METHYLPREDNISONE [Suspect]
     Active Substance: METHYLPREDNISOLONE
     Indication: SYSTEMIC LUPUS ERYTHEMATOSUS
     Route: 064
  3. ENOXAPARIN/ENOXAPARIN SODIUM [Suspect]
     Active Substance: ENOXAPARIN\ENOXAPARIN SODIUM
     Indication: SYSTEMIC LUPUS ERYTHEMATOSUS
     Route: 064

REACTIONS (11)
  - Foetal exposure during pregnancy [Unknown]
  - Hemivertebra [Unknown]
  - Cleft lip and palate [Unknown]
  - Patent ductus arteriosus [Unknown]
  - Microtia [Unknown]
  - Retrognathia [Unknown]
  - Cardiomyopathy [Unknown]
  - Coloboma [Unknown]
  - Microphthalmos [Unknown]
  - Atrioventricular septal defect [Unknown]
  - Oesophageal atresia [Unknown]
